FAERS Safety Report 12494024 (Version 2)
Quarter: 2016Q3

REPORT INFORMATION
  Report Type: Spontaneous
  Country: FR (occurrence: FR)
  Receive Date: 20160623
  Receipt Date: 20160706
  Transmission Date: 20161109
  Serious: Yes (Hospitalization, Other)
  Sender: FDA-Public Use
  Company Number: FR-009507513-1606FRA009212

PATIENT
  Age: 40 Year
  Sex: Female

DRUGS (2)
  1. GENTAMICIN SULFATE. [Suspect]
     Active Substance: GENTAMICIN SULFATE
     Indication: ENDOCARDITIS ENTEROCOCCAL
     Dosage: UNK
     Route: 042
     Dates: start: 201606, end: 20160613
  2. CUBICIN [Suspect]
     Active Substance: DAPTOMYCIN
     Indication: ENDOCARDITIS ENTEROCOCCAL
     Dosage: 8 MG/KG, UNK
     Route: 042
     Dates: start: 201606, end: 20160613

REACTIONS (3)
  - Rhabdomyolysis [Not Recovered/Not Resolved]
  - Renal failure [Recovering/Resolving]
  - Overdose [Not Recovered/Not Resolved]

NARRATIVE: CASE EVENT DATE: 20160610
